FAERS Safety Report 23832152 (Version 1)
Quarter: 2024Q2

REPORT INFORMATION
  Report Type: Spontaneous
  Country: US (occurrence: None)
  Receive Date: 20240507
  Receipt Date: 20240507
  Transmission Date: 20240716
  Serious: Yes (Hospitalization)
  Sender: FDA-Public Use
  Company Number: None

PATIENT
  Age: 65 Year
  Sex: Female
  Weight: 68.49 kg

DRUGS (3)
  1. MIRCERA [Suspect]
     Active Substance: METHOXY POLYETHYLENE GLYCOL-EPOETIN BETA
     Dosage: FREQUENCY : EVERY OTHER WEEK;?
     Route: 042
     Dates: start: 20240429, end: 20240429
  2. CALCITROL 1 MICROGRAM [Concomitant]
  3. VENOFER 100 MILLIGRAM IV [Concomitant]

REACTIONS (7)
  - Nonspecific reaction [None]
  - Unresponsive to stimuli [None]
  - Respiratory distress [None]
  - Inspiratory capacity decreased [None]
  - Blood pressure increased [None]
  - Oxygen saturation decreased [None]
  - Hypersensitivity [None]

NARRATIVE: CASE EVENT DATE: 20240429
